FAERS Safety Report 18594955 (Version 1)
Quarter: 2020Q4

REPORT INFORMATION
  Report Type: Spontaneous
  Country: US (occurrence: US)
  Receive Date: 20201209
  Receipt Date: 20201209
  Transmission Date: 20210114
  Serious: No
  Sender: FDA-Public Use
  Company Number: US-RECORDATI RARE DISEASES-2101783

PATIENT
  Age: 26 Year
  Sex: Male

DRUGS (3)
  1. SOMAVERT [Concomitant]
     Active Substance: PEGVISOMANT
  2. SIGNIFOR LAR [Suspect]
     Active Substance: PASIREOTIDE PAMOATE
     Indication: ACROMEGALY
  3. ADVIL [Concomitant]
     Active Substance: IBUPROFEN

REACTIONS (2)
  - Muscle spasms [Unknown]
  - Thyroid mass [Unknown]

NARRATIVE: CASE EVENT DATE: 2014
